FAERS Safety Report 18035309 (Version 1)
Quarter: 2020Q3

REPORT INFORMATION
  Report Type: Spontaneous
  Country: US (occurrence: US)
  Receive Date: 20200716
  Receipt Date: 20200716
  Transmission Date: 20201103
  Serious: No
  Sender: FDA-Public Use
  Company Number: None

PATIENT
  Age: 60 Year
  Sex: Male
  Weight: 115.21 kg

DRUGS (1)
  1. TRIENTINE 250MG CAP [Suspect]
     Active Substance: TRIENTINE HYDROCHLORIDE

REACTIONS (2)
  - Economic problem [None]
  - Insurance issue [None]
